FAERS Safety Report 17586074 (Version 1)
Quarter: 2020Q1

REPORT INFORMATION
  Report Type: Spontaneous
  Country: US (occurrence: US)
  Receive Date: 20200326
  Receipt Date: 20200326
  Transmission Date: 20200409
  Serious: Yes (Hospitalization)
  Sender: FDA-Public Use
  Company Number: None

PATIENT
  Sex: Male

DRUGS (9)
  1. PROMACTA [Suspect]
     Active Substance: ELTROMBOPAG OLAMINE
     Indication: IMMUNE THROMBOCYTOPENIC PURPURA
     Dosage: ?          OTHER FREQUENCY:EVERY OTHER DAY;?
     Route: 048
     Dates: start: 20190923
  2. CITALOPRAM [Concomitant]
     Active Substance: CITALOPRAM HYDROBROMIDE
  3. PROMACTA [Suspect]
     Active Substance: ELTROMBOPAG OLAMINE
     Indication: IMMUNE THROMBOCYTOPENIC PURPURA
     Dosage: ?          OTHER FREQUENCY:ALTERNATING DAYS;?
     Route: 048
     Dates: start: 20190923
  4. FLUDROCORT [Concomitant]
  5. TEMAZEPAM. [Concomitant]
     Active Substance: TEMAZEPAM
  6. TRIAMCINOLON [Concomitant]
  7. HYDROCODO/APAP [Concomitant]
  8. HYOSCYAMINE. [Concomitant]
     Active Substance: HYOSCYAMINE
  9. ROPINROLE [Concomitant]
     Active Substance: ROPINIROLE

REACTIONS (2)
  - Hospitalisation [None]
  - Therapy cessation [None]
